FAERS Safety Report 8963840 (Version 1)
Quarter: 2012Q4

REPORT INFORMATION
  Report Type: Report from Study
  Country: DE (occurrence: DE)
  Receive Date: 20121213
  Receipt Date: 20121213
  Transmission Date: 20130627
  Serious: Yes (Other)
  Sender: FDA-Public Use
  Company Number: DE-UCBSA-004907

PATIENT
  Age: 88 Year
  Sex: Male
  Weight: 77 kg

DRUGS (21)
  1. NEUPRO [Suspect]
     Indication: PARKINSON^S DISEASE
     Route: 062
     Dates: start: 20090121, end: 20090401
  2. NEUPRO [Suspect]
     Indication: PARKINSON^S DISEASE
     Route: 062
     Dates: start: 20090402, end: 20091007
  3. NEUPRO [Suspect]
     Indication: PARKINSON^S DISEASE
     Route: 062
     Dates: start: 20091008, end: 20091028
  4. NEUPRO [Suspect]
     Indication: PARKINSON^S DISEASE
     Route: 062
     Dates: start: 20091029, end: 20100602
  5. LEVODOPA COMP B [Concomitant]
     Indication: PARKINSON^S DISEASE
     Dosage: 50/12.5 MG AS GIVEN DOSE
     Dates: start: 20080424, end: 20080521
  6. LEVODOPA COMP B [Concomitant]
     Indication: PARKINSON^S DISEASE
     Dosage: 100/25 MG AS GIVEN DOSE
     Dates: start: 20080522, end: 20091111
  7. LEVODOPA COMP B [Concomitant]
     Indication: PARKINSON^S DISEASE
     Dosage: 100/25 MG AS GIVEN DOSE
     Dates: start: 20091112, end: 20100303
  8. LEVODOPA COMP B [Concomitant]
     Indication: PARKINSON^S DISEASE
     Dosage: 200/50 MG AS GIVEN DOSE
     Dates: start: 20100304, end: 20100407
  9. LEVODOPA COMP B [Concomitant]
     Indication: PARKINSON^S DISEASE
     Dosage: 200/50 MG
     Dates: start: 20100408, end: 20100505
  10. SOTALOL [Concomitant]
     Indication: ARRHYTHMIA
     Dates: end: 200904
  11. ASS [Concomitant]
     Indication: CARDIOVASCULAR EVENT PROPHYLAXIS
  12. FUROSEMIDE [Concomitant]
     Indication: HYPERTENSION
     Dates: end: 200904
  13. FUROSEMIDE [Concomitant]
     Indication: HYPERTENSION
     Dosage: OTHER 1 X1.5
     Dates: start: 200904, end: 200905
  14. FUROSEMIDE [Concomitant]
     Indication: HYPERTENSION
     Dates: start: 200905
  15. MOVICOL [Concomitant]
     Indication: CONSTIPATION
     Dosage: 1 BAG MG
     Dates: start: 200904
  16. CALCIVIT D3 [Concomitant]
     Indication: OSTEOPOROSIS
     Dosage: UNSPECIFIED MG
     Dates: start: 200904, end: 200905
  17. CALCIUM [Concomitant]
     Indication: OSTEOPOROSIS
     Dosage: 1 BAG MG OTHER 1(0.5, 6 DAYS PER WEEK)
  18. ALENDRONACID+VIT D [Concomitant]
     Indication: OSTEOPOROSIS
     Dates: start: 200904
  19. NOVAMINSULFON [Concomitant]
     Indication: PAIN
     Dosage: UNSPECIFIED ML OTHER 3(25 DROPS)
     Dates: start: 200904, end: 200905
  20. HEPARIN [Concomitant]
     Indication: THROMBOSIS PROPHYLAXIS
     Dosage: AMPOULES
     Dates: start: 200904
  21. ALENDRONACID+VIT D [Concomitant]
     Indication: OSTEOPOROSIS
     Dates: start: 200904

REACTIONS (1)
  - Aortic valve sclerosis [Not Recovered/Not Resolved]
